FAERS Safety Report 14145181 (Version 3)
Quarter: 2018Q1

REPORT INFORMATION
  Report Type: Spontaneous
  Country: DK (occurrence: DK)
  Receive Date: 20171031
  Receipt Date: 20180319
  Transmission Date: 20180508
  Serious: Yes (Life-Threatening, Hospitalization, Other)
  Sender: FDA-Public Use
  Company Number: DK-PFIZER INC-2017461448

PATIENT
  Age: 45 Year
  Sex: Female

DRUGS (2)
  1. ISOPTIN [Concomitant]
     Active Substance: VERAPAMIL HYDROCHLORIDE
     Indication: HEART RATE IRREGULAR
     Dosage: UNK
     Dates: start: 20110601, end: 20130818
  2. DALACIN C [Suspect]
     Active Substance: CLINDAMYCIN PHOSPHATE
     Indication: ANTIBIOTIC PROPHYLAXIS
     Dosage: 900 MG, 1X/DAY
     Route: 048
     Dates: start: 20130814, end: 20130815

REACTIONS (11)
  - Cardiac arrest [Recovered/Resolved]
  - Ejection fraction decreased [Unknown]
  - Ventricular fibrillation [Recovered/Resolved]
  - Cognitive disorder [Unknown]
  - Syncope [Recovered/Resolved]
  - Sleep disorder [Recovered/Resolved]
  - Malaise [Recovered/Resolved]
  - Dyspnoea [Unknown]
  - Ventricular tachycardia [Unknown]
  - Left ventricular dilatation [Unknown]
  - Loss of personal independence in daily activities [Unknown]

NARRATIVE: CASE EVENT DATE: 20130815
